FAERS Safety Report 5798003-8 (Version None)
Quarter: 2008Q3

REPORT INFORMATION
  Report Type: 
  Country: None (occurrence: None)
  Receive Date: 20080702
  Receipt Date: 20050307
  Transmission Date: 20090109
  Serious: Yes (Hospitalization)
  Sender: FDA-Public Use
  Company Number: B0374649A

PATIENT
  Age: 28 Year
  Sex: Male
  Weight: 60 kg

DRUGS (2)
  1. HALFAN [Suspect]
     Dosage: 2TAB SEE DOSAGE TEXT
     Dates: start: 20041201
  2. NO CONCURRENT MEDICATION [Concomitant]

REACTIONS (2)
  - ARRHYTHMIA [None]
  - CIRCULATORY COLLAPSE [None]
